FAERS Safety Report 7319564-3 (Version None)
Quarter: 2011Q1

REPORT INFORMATION
  Report Type: 
  Country: None (occurrence: None)
  Receive Date: 20110228
  Receipt Date: 20100615
  Transmission Date: 20110831
  Serious: No
  Sender: FDA-Public Use
  Company Number: A0861030A

PATIENT
  Age: 26 Year
  Sex: Female
  Weight: 82.7 kg

DRUGS (3)
  1. LAMOTRIGINE [Suspect]
     Indication: BIPOLAR DISORDER
     Dosage: 100MG PER DAY
     Route: 048
     Dates: start: 20100510, end: 20100529
  2. BUPROPION HYDROCHLORIDE [Suspect]
     Indication: DEPRESSION
     Dosage: 150MG TWICE PER DAY
     Route: 048
     Dates: start: 20100421
  3. VISTARIL [Concomitant]
     Dosage: 25MG PER DAY
     Dates: start: 20100421

REACTIONS (1)
  - DRUG EXPOSURE DURING PREGNANCY [None]
